FAERS Safety Report 4764982-0 (Version None)
Quarter: 2005Q3

REPORT INFORMATION
  Report Type: 
  Country: None (occurrence: None)
  Receive Date: 20050909
  Receipt Date: 20050830
  Transmission Date: 20060218
  Serious: Yes (Other)
  Sender: FDA-Public Use
  Company Number: US-ROCHE-416308

PATIENT
  Age: 47 Year
  Sex: Male

DRUGS (2)
  1. PEGASYS [Suspect]
     Indication: DRUG USE FOR UNKNOWN INDICATION
     Route: 058
     Dates: start: 20031118, end: 20050824
  2. COPEGUS [Suspect]
     Indication: DRUG USE FOR UNKNOWN INDICATION
     Route: 048
     Dates: start: 20031118, end: 20050824

REACTIONS (7)
  - BACK DISORDER [None]
  - FURUNCLE [None]
  - MIGRAINE [None]
  - NEOPLASM MALIGNANT [None]
  - PANCREATITIS [None]
  - PNEUMONIA [None]
  - VISION BLURRED [None]
